FAERS Safety Report 17643645 (Version 2)
Quarter: 2020Q2

REPORT INFORMATION
  Report Type: Report from Study
  Country: None (occurrence: DE)
  Receive Date: 20200408
  Receipt Date: 20200428
  Transmission Date: 20200713
  Serious: Yes (Death)
  Sender: FDA-Public Use
  Company Number: DE-ABBVIE-20K-062-3355058-00

PATIENT
  Sex: Male

DRUGS (1)
  1. DUODOPA [Suspect]
     Active Substance: CARBIDOPA\LEVODOPA
     Indication: PARKINSON^S DISEASE
     Dosage: MD 8ML, CRD 1.8ML/H, ED 1ML,  STRENGTH (CMP): 20 MG/ML 5 MG/ML
     Route: 050
     Dates: start: 20190305

REACTIONS (4)
  - Dehydration [Fatal]
  - Device occlusion [Unknown]
  - General physical health deterioration [Fatal]
  - Dysphagia [Fatal]
